FAERS Safety Report 19140199 (Version 1)
Quarter: 2021Q2

REPORT INFORMATION
  Report Type: Other
  Country: CA (occurrence: CA)
  Receive Date: 20210415
  Receipt Date: 20210415
  Transmission Date: 20210717
  Serious: Yes (Other)
  Sender: FDA-Public Use
  Company Number: CA-APOTEX-2021AP009013

PATIENT
  Age: 62 Year
  Sex: Male

DRUGS (9)
  1. DIBUCAINE [CINCHOCAINE] [Concomitant]
     Indication: PRODUCT USED FOR UNKNOWN INDICATION
     Dosage: UNK UNK, Q.4H.
     Route: 061
  2. METFORMIN [Concomitant]
     Active Substance: METFORMIN HYDROCHLORIDE
     Indication: PRODUCT USED FOR UNKNOWN INDICATION
     Dosage: 500 MILLIGRAM, BID
     Route: 065
  3. VENLAFAXINE [Suspect]
     Active Substance: VENLAFAXINE HYDROCHLORIDE
     Indication: PRODUCT USED FOR UNKNOWN INDICATION
     Dosage: 150 MILLIGRAM, QD
     Route: 048
  4. FRAMYCETIN [Concomitant]
     Active Substance: FRAMYCETIN
     Indication: PRODUCT USED FOR UNKNOWN INDICATION
     Dosage: UNK, Q.4H.
     Route: 061
  5. TELMISARTAN. [Suspect]
     Active Substance: TELMISARTAN
     Indication: PRODUCT USED FOR UNKNOWN INDICATION
     Dosage: 40 MILLIGRAM, QD
     Route: 048
  6. ESCULIN [Concomitant]
     Active Substance: ESCULIN
     Indication: PRODUCT USED FOR UNKNOWN INDICATION
     Dosage: UNK, Q.4H.
     Route: 061
  7. ATORVASTATIN [Suspect]
     Active Substance: ATORVASTATIN
     Indication: PRODUCT USED FOR UNKNOWN INDICATION
     Dosage: 40 MILLIGRAM
     Route: 048
  8. PANTOPRAZOLE [Suspect]
     Active Substance: PANTOPRAZOLE
     Indication: PRODUCT USED FOR UNKNOWN INDICATION
     Dosage: 40 MILLIGRAM, QD
     Route: 048
  9. SANDOSTATIN LAR DEPOT [Suspect]
     Active Substance: OCTREOTIDE ACETATE
     Indication: ACROMEGALY
     Dosage: 30 MILLIGRAM, Q.3W
     Route: 030

REACTIONS (9)
  - Inappropriate schedule of product administration [Unknown]
  - Crohn^s disease [Unknown]
  - Diverticulitis [Unknown]
  - Blood pressure systolic increased [Unknown]
  - Contusion [Unknown]
  - Blood pressure increased [Unknown]
  - Drug ineffective [Unknown]
  - Body temperature decreased [Unknown]
  - Back pain [Unknown]
